FAERS Safety Report 9357588 (Version 2)
Quarter: 2013Q2

REPORT INFORMATION
  Report Type: Spontaneous
  Country: US (occurrence: US)
  Receive Date: 20130620
  Receipt Date: 20130620
  Transmission Date: 20140414
  Serious: Yes (Hospitalization)
  Sender: FDA-Public Use
  Company Number: US-BAYER-2013-072201

PATIENT
  Age: 30 Year
  Sex: Female
  Weight: 102 kg

DRUGS (13)
  1. YASMIN [Suspect]
  2. CYMBALTA [Concomitant]
     Dosage: 60 MG, UNK
     Route: 048
     Dates: start: 20070519
  3. HYDROCODONE W/ACETAMINOPHEN [Concomitant]
     Indication: BACK PAIN
     Dosage: 5-500 MG
     Route: 048
     Dates: start: 20070519
  4. IBUPROFEN [Concomitant]
     Dosage: 200 MG, UNK
     Route: 048
     Dates: start: 20070519
  5. ROZEREM [Concomitant]
     Dosage: 8 MG, HS
     Route: 048
     Dates: start: 20070519
  6. ROZEREM [Concomitant]
     Dosage: 8 MG, UNK
     Dates: start: 20070404
  7. LORAZEPAM [Concomitant]
     Dosage: 0.5 MG, ONE TO TWO TABLETS EVERY 8 HOURS IF NEEDED
     Route: 048
     Dates: start: 20070608
  8. SOMA [Concomitant]
     Dosage: 350 MG, 1 TABLET 3 TIMES DAILY AS NEEDED AT BED TIME
     Route: 048
     Dates: start: 20070608
  9. ZOLPIDEM [Concomitant]
     Dosage: 10 MG, 1 TABLET AT BED TIME AS NEEDED
     Route: 048
     Dates: start: 20070608
  10. OXYCODONE HYDROCHLORIDE [Concomitant]
     Dosage: 5 MG, UNK
     Dates: start: 20070606
  11. CARISOPRODOL [Concomitant]
     Dosage: 350 MG, UNK
     Dates: start: 20070519
  12. OXYCODONE [Concomitant]
     Dosage: 5 MG, UNK
  13. NICOPATCH [Concomitant]

REACTIONS (2)
  - Deep vein thrombosis [Recovered/Resolved]
  - Pulmonary embolism [None]
